FAERS Safety Report 5336799-X (Version None)
Quarter: 2007Q2

REPORT INFORMATION
  Report Type: 
  Country: None (occurrence: None)
  Receive Date: 20070529
  Receipt Date: 20070521
  Transmission Date: 20071010
  Serious: Yes (Life-Threatening, Hospitalization)
  Sender: FDA-Public Use
  Company Number: PHHO2007TW05526

PATIENT
  Age: 25 Year
  Sex: Male
  Weight: 86.8 kg

DRUGS (2)
  1. DIPHENHYDRAMINE HCL [Concomitant]
  2. EXJADE [Suspect]
     Indication: BLOOD IRON INCREASED
     Dosage: 1715 MG, QD
     Route: 048
     Dates: start: 20060510, end: 20070326

REACTIONS (12)
  - ACINETOBACTER BACTERAEMIA [None]
  - CEREBRAL HAEMATOMA [None]
  - DEPRESSED LEVEL OF CONSCIOUSNESS [None]
  - FEMUR FRACTURE [None]
  - HAEMATOMA EVACUATION [None]
  - JOINT SWELLING [None]
  - NERVOUS SYSTEM DISORDER [None]
  - OPEN REDUCTION OF FRACTURE [None]
  - PYREXIA [None]
  - ROAD TRAFFIC ACCIDENT [None]
  - SOMNOLENCE [None]
  - SUBDURAL HAEMORRHAGE [None]
